FAERS Safety Report 9012282 (Version 1)
Quarter: 2013Q1

REPORT INFORMATION
  Report Type: Spontaneous
  Country: FR (occurrence: FR)
  Receive Date: 20130114
  Receipt Date: 20130114
  Transmission Date: 20140127
  Serious: Yes (Hospitalization)
  Sender: FDA-Public Use
  Company Number: FR-ASTRAZENECA-2013SE01614

PATIENT
  Age: 30 Year
  Sex: Male

DRUGS (1)
  1. XEROQUEL [Suspect]
     Route: 048
     Dates: end: 201212

REACTIONS (4)
  - Dermo-hypodermitis [Recovering/Resolving]
  - Inflammation [Recovering/Resolving]
  - Oedema peripheral [Recovering/Resolving]
  - Pyrexia [Recovered/Resolved]
